FAERS Safety Report 5482041-9 (Version None)
Quarter: 2007Q4

REPORT INFORMATION
  Report Type: 
  Country: None (occurrence: None)
  Receive Date: 20071004
  Receipt Date: 20070919
  Transmission Date: 20080405
  Serious: Yes (Hospitalization)
  Sender: FDA-Public Use
  Company Number: 2007RR-10191

PATIENT
  Age: 6 Month

DRUGS (1)
  1. ACETAMINOPHEN [Suspect]

REACTIONS (2)
  - FEBRILE CONVULSION [None]
  - URTICARIA [None]
